FAERS Safety Report 23531139 (Version 1)
Quarter: 2024Q1

REPORT INFORMATION
  Report Type: Spontaneous
  Country: IT (occurrence: IT)
  Receive Date: 20240216
  Receipt Date: 20240216
  Transmission Date: 20240409
  Serious: Yes (Other)
  Sender: FDA-Public Use
  Company Number: IT-SUN PHARMACEUTICAL INDUSTRIES LTD-2024RR-431510

PATIENT
  Age: 67 Year
  Sex: Female

DRUGS (2)
  1. GEMCITABINE [Suspect]
     Active Substance: GEMCITABINE
     Indication: Lung neoplasm malignant
     Dosage: 1600 MILLIGRAM
     Route: 040
     Dates: start: 20230927, end: 20230927
  2. CISPLATIN [Suspect]
     Active Substance: CISPLATIN
     Indication: Lung neoplasm malignant
     Dosage: 140 MILLIGRAM
     Route: 040
     Dates: start: 20230927, end: 20230927

REACTIONS (2)
  - Gastrointestinal toxicity [Unknown]
  - Anaemia [Unknown]

NARRATIVE: CASE EVENT DATE: 20231013
